FAERS Safety Report 15213452 (Version 2)
Quarter: 2018Q3

REPORT INFORMATION
  Report Type: Spontaneous
  Country: IL (occurrence: IL)
  Receive Date: 20180730
  Receipt Date: 20180731
  Transmission Date: 20181010
  Serious: Yes (Other)
  Sender: FDA-Public Use
  Company Number: IL-ROCHE-2160351

PATIENT
  Age: 62 Year
  Sex: Female

DRUGS (10)
  1. OCREVUS [Suspect]
     Active Substance: OCRELIZUMAB
     Indication: PROGRESSIVE MULTIPLE SCLEROSIS
     Route: 042
     Dates: start: 20171001
  2. LYRICA [Concomitant]
     Active Substance: PREGABALIN
  3. TEGRETOL [Concomitant]
     Active Substance: CARBAMAZEPINE
  4. CARTIA (ISRAEL) [Concomitant]
  5. OCREVUS [Suspect]
     Active Substance: OCRELIZUMAB
     Route: 042
     Dates: start: 20180401
  6. EZETIMIBE. [Concomitant]
     Active Substance: EZETIMIBE
  7. OMEPRADEX [Concomitant]
     Active Substance: OMEPRAZOLE
  8. OCREVUS [Suspect]
     Active Substance: OCRELIZUMAB
     Route: 042
     Dates: start: 20171015
  9. GLUCOPHAGE [Concomitant]
     Active Substance: METFORMIN HYDROCHLORIDE
  10. CANNABIS [Concomitant]
     Active Substance: CANNABIS SATIVA SUBSP. INDICA TOP

REACTIONS (1)
  - Breast cancer [Unknown]
